FAERS Safety Report 4641485-5 (Version None)
Quarter: 2005Q2

REPORT INFORMATION
  Report Type: 
  Country: None (occurrence: None)
  Receive Date: 20050421
  Receipt Date: 20050415
  Transmission Date: 20051028
  Serious: Yes (Hospitalization, Other)
  Sender: FDA-Public Use
  Company Number: 2005-0008062

PATIENT
  Age: 51 Year
  Sex: Male

DRUGS (13)
  1. ABACAVIR [Suspect]
     Indication: HIV INFECTION
     Route: 048
  2. VIREAD [Suspect]
     Indication: HIV INFECTION
     Dosage: 300MG PER DAY
     Route: 048
     Dates: start: 20020118
  3. KALETRA [Concomitant]
     Indication: HIV INFECTION
     Route: 065
  4. DIDANOSINE [Concomitant]
     Indication: HIV INFECTION
     Route: 065
  5. CARISOPRODOL [Concomitant]
     Route: 065
  6. FENTANYL [Concomitant]
     Route: 065
  7. FLUCONAZOLE [Concomitant]
     Route: 065
  8. GLYBURIDE [Concomitant]
     Route: 065
  9. PROMETHAZINE [Concomitant]
     Route: 065
  10. RABEPRAZOLE SODIUM [Concomitant]
     Route: 065
  11. BACTRIM [Concomitant]
     Route: 065
  12. LORATADINE [Concomitant]
     Route: 065
  13. LORTAB [Concomitant]
     Route: 065

REACTIONS (28)
  - ABDOMINAL DISTENSION [None]
  - ANOREXIA [None]
  - ASCITES [None]
  - BLOOD AMYLASE INCREASED [None]
  - BONE MARROW OEDEMA [None]
  - CHEST PAIN [None]
  - CHILLS [None]
  - DYSPNOEA [None]
  - DYSPNOEA EXERTIONAL [None]
  - EARLY SATIETY [None]
  - HEART RATE INCREASED [None]
  - HEPATIC FAILURE [None]
  - HEPATIC STEATOSIS [None]
  - LACTIC ACIDOSIS [None]
  - LIPASE INCREASED [None]
  - LOSS OF CONSCIOUSNESS [None]
  - METABOLIC ACIDOSIS [None]
  - NON-CARDIAC CHEST PAIN [None]
  - OEDEMA PERIPHERAL [None]
  - ORTHOPNOEA [None]
  - PAIN IN EXTREMITY [None]
  - POLYDIPSIA [None]
  - POLYURIA [None]
  - PROSTATITIS [None]
  - RENAL CYST [None]
  - VISION BLURRED [None]
  - WEIGHT DECREASED [None]
  - WEIGHT INCREASED [None]
